FAERS Safety Report 20288949 (Version 2)
Quarter: 2022Q1

REPORT INFORMATION
  Report Type: Report from Study
  Country: GB (occurrence: GB)
  Receive Date: 20220104
  Receipt Date: 20220315
  Transmission Date: 20220423
  Serious: Yes (Other)
  Sender: FDA-Public Use
  Company Number: GB-KOREA IPSEN Pharma-2021-25040

PATIENT
  Sex: Female

DRUGS (2)
  1. LANREOTIDE ACETATE [Suspect]
     Active Substance: LANREOTIDE ACETATE
     Indication: Neuroendocrine tumour
     Dosage: 120MG/ 0.5ML, EVERY THREE WEEKS, SUBCUTANEOUS
     Route: 058
  2. FELODIPINE [Suspect]
     Active Substance: FELODIPINE
     Indication: Blood pressure abnormal
     Dosage: DOSE NOT REPORTED
     Route: 065

REACTIONS (3)
  - Syncope [Recovered/Resolved]
  - Blood pressure decreased [Unknown]
  - Off label use [Unknown]
